FAERS Safety Report 14219119 (Version 1)
Quarter: 2017Q4

REPORT INFORMATION
  Report Type: Spontaneous
  Country: US (occurrence: US)
  Receive Date: 20171123
  Receipt Date: 20171123
  Transmission Date: 20180321
  Serious: No
  Sender: FDA-Public Use
  Company Number: US-JNJFOC-20171107637

PATIENT
  Sex: Female
  Weight: 62.6 kg

DRUGS (3)
  1. STELARA [Suspect]
     Active Substance: USTEKINUMAB
     Indication: PSORIASIS
     Route: 058
     Dates: start: 201607
  2. STELARA [Suspect]
     Active Substance: USTEKINUMAB
     Indication: PSORIASIS
     Route: 058
     Dates: start: 201607
  3. STELARA [Suspect]
     Active Substance: USTEKINUMAB
     Indication: PUSTULAR PSORIASIS
     Route: 058
     Dates: start: 201607

REACTIONS (1)
  - Headache [Recovered/Resolved]
